FAERS Safety Report 5952983-6 (Version None)
Quarter: 2008Q4

REPORT INFORMATION
  Report Type: 
  Country: None (occurrence: None)
  Receive Date: 20081114
  Receipt Date: 20081103
  Transmission Date: 20090506
  Serious: Yes (Hospitalization)
  Sender: FDA-Public Use
  Company Number: US-AVENTIS-200817618US

PATIENT
  Age: 38 Year
  Sex: Male

DRUGS (7)
  1. KETEK [Suspect]
     Dates: start: 20041025
  2. KETEK [Suspect]
     Indication: GLOSSITIS
     Dates: start: 20041025
  3. ERYTHROMYCIN [Suspect]
     Indication: GLOSSITIS
     Dosage: DOSE: 400 MG/5CC SWISH AND SPIT
     Dates: start: 20041025
  4. DECADRON [Concomitant]
     Indication: GLOSSITIS
     Dosage: DOSE: UNK
     Dates: start: 20041025
  5. BENADRYL [Concomitant]
     Indication: GLOSSITIS
     Dosage: DOSE: 25 MG/5CC  SWISH AND SPIT OUT
     Dates: start: 20041025
  6. BC [Concomitant]
     Dosage: DOSE: UNK
  7. ANTIHYPERTENSIVES [Concomitant]
     Indication: HYPERTENSION
     Dosage: DOSE: UNK

REACTIONS (5)
  - AMMONIA INCREASED [None]
  - CONFUSIONAL STATE [None]
  - HEPATIC CIRRHOSIS [None]
  - LIVER FUNCTION TEST ABNORMAL [None]
  - WEIGHT INCREASED [None]
